FAERS Safety Report 24087210 (Version 1)
Quarter: 2024Q3

REPORT INFORMATION
  Report Type: Report from Study
  Country: US (occurrence: US)
  Receive Date: 20240713
  Receipt Date: 20240713
  Transmission Date: 20241016
  Serious: Yes (Hospitalization)
  Sender: ABBVIE
  Company Number: US-ABBVIE-5836858

PATIENT
  Age: 83 Year
  Sex: Male

DRUGS (1)
  1. RINVOQ [Suspect]
     Active Substance: UPADACITINIB
     Indication: Crohn^s disease
     Route: 048
     Dates: start: 20240208, end: 20240709

REACTIONS (4)
  - Urinary tract infection [Not Recovered/Not Resolved]
  - Urinary tract infection [Recovered/Resolved]
  - Platelet count decreased [Not Recovered/Not Resolved]
  - Clostridium difficile infection [Not Recovered/Not Resolved]

NARRATIVE: CASE EVENT DATE: 20240623
